FAERS Safety Report 9444737 (Version 2)
Quarter: 2013Q4

REPORT INFORMATION
  Report Type: Report from Study
  Country: DE (occurrence: DE)
  Receive Date: 20130807
  Receipt Date: 20131009
  Transmission Date: 20140711
  Serious: Yes (Other)
  Sender: FDA-Public Use
  Company Number: PHHY2013DE084818

PATIENT
  Sex: Female

DRUGS (3)
  1. AFINITOR [Suspect]
     Indication: BREAST CANCER METASTATIC
     Route: 048
  2. AFINITOR [Suspect]
     Route: 048
  3. EXEMESTANE [Concomitant]
     Indication: BREAST CANCER METASTATIC
     Route: 048

REACTIONS (1)
  - Osteonecrosis of jaw [Recovered/Resolved]
